FAERS Safety Report 8775229 (Version 1)
Quarter: 2012Q4

REPORT INFORMATION
  Report Type: 
  Country: DE (occurrence: DE)
  Receive Date: 20120910
  Receipt Date: 20120910
  Transmission Date: 20130627
  Serious: Yes (Other)
  Sender: FDA-Public Use
  Company Number: DE-ROCHE-802008

PATIENT
  Sex: Female
  Weight: 65.5 kg

DRUGS (9)
  1. RITUXIMAB [Suspect]
     Indication: WALDENSTROM^S MACROGLOBULINAEMIA
     Route: 042
  2. BENDAMUSTINE [Suspect]
     Indication: WALDENSTROM^S MACROGLOBULINAEMIA
     Route: 042
     Dates: start: 20110427, end: 20110909
  3. IBUPROFEN [Concomitant]
     Route: 048
  4. NOVAMINSULFON [Concomitant]
     Dosage: as required
     Route: 048
  5. OMEPRAZOLE [Concomitant]
     Route: 048
  6. AMLODIPIN [Concomitant]
     Route: 048
  7. BISOPROLOL [Concomitant]
     Route: 048
  8. RAMIPRIL COMP [Concomitant]
     Route: 048
  9. RAMIPRIL [Concomitant]
     Route: 048

REACTIONS (3)
  - Macular degeneration [Unknown]
  - Visual acuity reduced [Not Recovered/Not Resolved]
  - Visual field defect [Not Recovered/Not Resolved]
